FAERS Safety Report 21058932 (Version 2)
Quarter: 2022Q3

REPORT INFORMATION
  Report Type: Spontaneous
  Country: CN (occurrence: CN)
  Receive Date: 20220708
  Receipt Date: 20220714
  Transmission Date: 20221027
  Serious: Yes (Death, Other)
  Sender: FDA-Public Use
  Company Number: CN-OTSUKA-2022_035099

PATIENT
  Age: 48 Year
  Sex: Female

DRUGS (4)
  1. BUSULFAN [Suspect]
     Active Substance: BUSULFAN
     Indication: Aplastic anaemia
     Dosage: 0.8 MG/KG Q6H FOR 3 DAYS
     Route: 065
  2. SEMUSTINE [Suspect]
     Active Substance: SEMUSTINE
     Indication: Aplastic anaemia
     Dosage: 0.2 G/M2, FOR ONE DAY
     Route: 065
  3. CYCLOPHOSPHAMIDE [Suspect]
     Active Substance: CYCLOPHOSPHAMIDE
     Indication: Aplastic anaemia
     Dosage: 1.8 G/M2 FOR 2 DAYS
     Route: 065
  4. CYTARABINE [Suspect]
     Active Substance: CYTARABINE
     Indication: Aplastic anaemia
     Dosage: 2 G/M2 EVERY 12 HOURS FOR 2 DAYS
     Route: 065

REACTIONS (7)
  - Haemorrhage intracranial [Fatal]
  - Cytomegalovirus syndrome [Fatal]
  - Pneumocystis jirovecii pneumonia [Fatal]
  - Multiple organ dysfunction syndrome [Fatal]
  - Pneumonia [Fatal]
  - Thrombocytopenia [Unknown]
  - Product use in unapproved indication [Unknown]
